FAERS Safety Report 7416327-5 (Version None)
Quarter: 2011Q2

REPORT INFORMATION
  Report Type: 
  Country: None (occurrence: None)
  Receive Date: 20110414
  Receipt Date: 20110405
  Transmission Date: 20111010
  Serious: Yes (Death, Other)
  Sender: FDA-Public Use
  Company Number: JP-AMGEN-JPNCT2011008658

PATIENT
  Age: 58 Year
  Sex: Male
  Weight: 75 kg

DRUGS (16)
  1. PANITUMUMAB [Suspect]
     Indication: COLORECTAL CANCER
     Dosage: 6 MG/KG, Q2WK
     Route: 041
     Dates: start: 20101004, end: 20101213
  2. LOXONIN [Concomitant]
     Indication: PAIN
     Route: 048
     Dates: start: 20100524, end: 20110120
  3. FLUOROURACIL [Suspect]
     Indication: COLORECTAL CANCER
     Route: 040
     Dates: start: 20101004, end: 20101213
  4. DECADRON [Concomitant]
     Indication: PROPHYLAXIS OF NAUSEA AND VOMITING
     Route: 042
     Dates: start: 20090209, end: 20110120
  5. FLUOROURACIL [Suspect]
     Route: 041
     Dates: start: 20101004, end: 20101213
  6. MAGMITT [Concomitant]
     Indication: CONSTIPATION PROPHYLAXIS
     Route: 048
     Dates: start: 20090223, end: 20110120
  7. ANTIHISTAMINES [Concomitant]
     Indication: PROPHYLAXIS
     Dosage: UNK
     Route: 065
  8. MINOMYCIN [Concomitant]
     Indication: INFECTION PROPHYLAXIS
     Route: 048
     Dates: start: 20101004, end: 20110120
  9. OXYCONTIN [Concomitant]
     Indication: PAIN
     Route: 048
     Dates: start: 20100906, end: 20110120
  10. CORTICOSTEROIDS [Concomitant]
     Indication: PROPHYLAXIS
     Dosage: UNK
     Route: 065
  11. POLARAMINE [Concomitant]
     Indication: ALLERGY PROPHYLAXIS
     Route: 042
     Dates: start: 20101004, end: 20110120
  12. LOSARTAN POTASSIUM AND HYDROCHLOROTHIAZIDE [Concomitant]
     Indication: HYPERTENSION
     Route: 048
     Dates: start: 20090525, end: 20110120
  13. IRINOTECAN HCL [Suspect]
     Indication: COLORECTAL CANCER
     Route: 041
     Dates: start: 20101004, end: 20101213
  14. CALCIUM LEVOFOLINATE [Concomitant]
     Indication: COLORECTAL CANCER
     Route: 041
     Dates: start: 20101004, end: 20101213
  15. DIAZEPAM [Concomitant]
     Indication: DEPRESSION
     Route: 048
     Dates: start: 20090309, end: 20110120
  16. ALOXI [Concomitant]
     Indication: PROPHYLAXIS OF NAUSEA AND VOMITING
     Route: 042
     Dates: start: 20100607, end: 20110120

REACTIONS (6)
  - WHITE BLOOD CELL COUNT DECREASED [None]
  - NEUTROPHIL COUNT DECREASED [None]
  - DRY SKIN [None]
  - INTERSTITIAL LUNG DISEASE [None]
  - STOMATITIS [None]
  - HAEMOGLOBIN DECREASED [None]
